FAERS Safety Report 21022137 (Version 1)
Quarter: 2022Q2

REPORT INFORMATION
  Report Type: Spontaneous
  Country: US (occurrence: None)
  Receive Date: 20220628
  Receipt Date: 20220628
  Transmission Date: 20220721
  Serious: No
  Sender: FDA-Public Use
  Company Number: None

PATIENT
  Age: 67 Year
  Sex: Female
  Weight: 66.15 kg

DRUGS (13)
  1. OXCARBAZEPINE [Suspect]
     Active Substance: OXCARBAZEPINE
     Indication: Trigeminal neuralgia
     Dosage: OTHER QUANTITY : 1 TABLET(S);?FREQUENCY : EVERY 12 HOURS;?
     Route: 048
     Dates: start: 20220531, end: 20220612
  2. IMVEXXY [Concomitant]
     Active Substance: ESTRADIOL
  3. LOSARTAN [Concomitant]
     Active Substance: LOSARTAN
  4. SUMATRIPTAN [Concomitant]
     Active Substance: SUMATRIPTAN
  5. Lidocaine 4% nasal spray [Concomitant]
  6. ALBUTEROL [Concomitant]
     Active Substance: ALBUTEROL
  7. CLARITIN [Concomitant]
     Active Substance: LORATADINE
  8. FLONASE [Concomitant]
     Active Substance: FLUTICASONE PROPIONATE
  9. CITRUCEL [Concomitant]
     Active Substance: METHYLCELLULOSE (4000 MPA.S)
  10. MIRALAX [Concomitant]
     Active Substance: POLYETHYLENE GLYCOL 3350
  11. NAPROSYN [Concomitant]
     Active Substance: NAPROXEN
  12. ASPIRIN [Concomitant]
     Active Substance: ASPIRIN
  13. Excedrine [Concomitant]

REACTIONS (3)
  - Pruritus [None]
  - Oral pruritus [None]
  - Oral discomfort [None]

NARRATIVE: CASE EVENT DATE: 20220612
